FAERS Safety Report 4856803-2 (Version None)
Quarter: 2005Q4

REPORT INFORMATION
  Report Type: 
  Country: None (occurrence: None)
  Receive Date: 20051219
  Receipt Date: 20050126
  Transmission Date: 20060501
  Serious: No
  Sender: FDA-Public Use
  Company Number: US-GLAXOSMITHKLINE-A0542331A

PATIENT
  Age: 43 Year
  Sex: Female

DRUGS (2)
  1. NICODERM CQ [Suspect]
     Dates: start: 20050102
  2. NICODERM CQ [Suspect]
     Dates: start: 20050102

REACTIONS (4)
  - APPLICATION SITE ERYTHEMA [None]
  - FATIGUE [None]
  - IRRITABILITY [None]
  - LETHARGY [None]
